FAERS Safety Report 24553896 (Version 1)
Quarter: 2024Q4

REPORT INFORMATION
  Report Type: Spontaneous
  Country: GB (occurrence: GB)
  Receive Date: 20241028
  Receipt Date: 20241028
  Transmission Date: 20250115
  Serious: No
  Sender: ROCHE
  Company Number: GB-Merck Healthcare KGaA-2024046645

PATIENT
  Age: 8 Year
  Sex: Female

DRUGS (1)
  1. SOMATROPIN [Suspect]
     Active Substance: SOMATROPIN
     Indication: Product used for unknown indication
     Route: 065

REACTIONS (5)
  - Haemorrhage [Not Recovered/Not Resolved]
  - Contusion [Not Recovered/Not Resolved]
  - Undersensing [Unknown]
  - Wrong technique in product usage process [Unknown]
  - Device information output issue [Unknown]
